FAERS Safety Report 5082611-6 (Version None)
Quarter: 2006Q3

REPORT INFORMATION
  Report Type: 
  Country: None (occurrence: None)
  Receive Date: 20060811
  Receipt Date: 20060728
  Transmission Date: 20061208
  Serious: Yes (Hospitalization)
  Sender: FDA-Public Use
  Company Number: DSA_28531_2006

PATIENT
  Age: 86 Year
  Sex: Male
  Weight: 88.4514 kg

DRUGS (5)
  1. ATIVAN [Suspect]
     Dosage: 1 MG ONCE PO
     Route: 048
     Dates: start: 20060718, end: 20060718
  2. ATIVAN [Suspect]
     Dosage: 1 MG ONCE
     Dates: start: 20060718, end: 20060718
  3. LASIX [Concomitant]
  4. PLAVIX [Concomitant]
  5. PROZAC [Concomitant]

REACTIONS (6)
  - CONFUSIONAL STATE [None]
  - GAIT DISTURBANCE [None]
  - MYOCARDIAL INFARCTION [None]
  - OXYGEN SATURATION DECREASED [None]
  - PERSISTENT FOETAL CIRCULATION [None]
  - TRANSIENT ISCHAEMIC ATTACK [None]
